FAERS Safety Report 11220211 (Version 1)
Quarter: 2015Q2

REPORT INFORMATION
  Report Type: Spontaneous
  Country: US (occurrence: US)
  Receive Date: 20150625
  Receipt Date: 20150625
  Transmission Date: 20150821
  Serious: No
  Sender: FDA-Public Use
  Company Number: US-EXELIXIS-CABO-14003938

PATIENT
  Sex: Female
  Weight: 74 kg

DRUGS (8)
  1. LEVOTHYROXINE [Concomitant]
     Active Substance: LEVOTHYROXINE
  2. TRAMADOL [Concomitant]
     Active Substance: TRAMADOL
  3. IMODIUM [Concomitant]
     Active Substance: LOPERAMIDE HYDROCHLORIDE
  4. COMETRIQ [Suspect]
     Active Substance: CABOZANTINIB S-MALATE
     Indication: THYROID CANCER
     Dosage: 140 MG, QD
     Route: 048
     Dates: start: 20131115, end: 20140116
  5. NORVASC [Concomitant]
     Active Substance: AMLODIPINE BESYLATE
  6. COMETRIQ [Suspect]
     Active Substance: CABOZANTINIB S-MALATE
     Dosage: 120 MG, QD
     Route: 048
     Dates: start: 20140117, end: 20141012
  7. COMETRIQ [Suspect]
     Active Substance: CABOZANTINIB S-MALATE
     Dosage: 80 MG, QD
     Route: 048
     Dates: start: 20141013
  8. GABAPENTIN. [Concomitant]
     Active Substance: GABAPENTIN

REACTIONS (15)
  - Scar [Unknown]
  - Oral pain [Unknown]
  - Odynophagia [Unknown]
  - Retching [Unknown]
  - Fatigue [Unknown]
  - Dysgeusia [Unknown]
  - Diarrhoea [Unknown]
  - Throat tightness [Unknown]
  - Walking disability [Unknown]
  - Ageusia [Unknown]
  - Asthenia [Unknown]
  - Blister [Unknown]
  - Dysphagia [Unknown]
  - Decreased appetite [Not Recovered/Not Resolved]
  - Weight decreased [Not Recovered/Not Resolved]
